FAERS Safety Report 24970887 (Version 2)
Quarter: 2025Q1

REPORT INFORMATION
  Report Type: Spontaneous
  Country: US (occurrence: US)
  Receive Date: 20250214
  Receipt Date: 20250319
  Transmission Date: 20250409
  Serious: No
  Sender: ALKERMES
  Company Number: US-ALKERMES INC.-ALK-2025-000318

PATIENT
  Age: 47 Year
  Sex: Female
  Weight: 117.01 kg

DRUGS (6)
  1. VIVITROL [Suspect]
     Active Substance: NALTREXONE
     Indication: Alcoholism
     Route: 030
     Dates: start: 20231127, end: 20241106
  2. NALTREXONE [Concomitant]
     Active Substance: NALTREXONE
     Indication: Product used for unknown indication
     Route: 048
     Dates: start: 2024
  3. KEPPRA [Concomitant]
     Active Substance: LEVETIRACETAM
     Indication: Product used for unknown indication
     Route: 065
  4. GABAPENTIN [Concomitant]
     Active Substance: GABAPENTIN
     Indication: Product used for unknown indication
     Route: 065
  5. NEXIUM [Concomitant]
     Active Substance: ESOMEPRAZOLE MAGNESIUM
     Indication: Product used for unknown indication
     Route: 065
  6. NORVASC [Concomitant]
     Active Substance: AMLODIPINE BESYLATE
     Indication: Product used for unknown indication
     Route: 065

REACTIONS (2)
  - Neuralgia [Recovered/Resolved]
  - Fatigue [Recovered/Resolved]

NARRATIVE: CASE EVENT DATE: 20241001
